FAERS Safety Report 9420169 (Version 1)
Quarter: 2013Q3

REPORT INFORMATION
  Report Type: Spontaneous
  Country: DE (occurrence: DE)
  Receive Date: 20130725
  Receipt Date: 20130725
  Transmission Date: 20140515
  Serious: Yes (Congenital Anomaly)
  Sender: FDA-Public Use
  Company Number: DE-TEVA-419095GER

PATIENT
  Age: 1 Day
  Sex: Male

DRUGS (9)
  1. FLUOROURACIL [Suspect]
     Route: 064
  2. ADRIAMYCIN [Suspect]
     Route: 064
  3. CYCLOPHOSPHAMID [Suspect]
     Route: 064
  4. ARILIN 100 VAGINALZAEPFCHEN [Concomitant]
     Route: 064
  5. D?DERLEIN MED VAGINALKAPSELN [Concomitant]
     Route: 064
  6. PSORCUTAN BETA SALBE [Concomitant]
     Route: 064
  7. FOLIO [Concomitant]
     Route: 064
  8. CEFAZOLIN [Concomitant]
     Route: 064
  9. CYTOTEC [Concomitant]
     Route: 064

REACTIONS (1)
  - Haemangioma congenital [Unknown]
